FAERS Safety Report 6908349-5 (Version None)
Quarter: 2010Q3

REPORT INFORMATION
  Report Type: 
  Country: None (occurrence: None)
  Receive Date: 20100708
  Receipt Date: 20090518
  Transmission Date: 20110219
  Serious: Yes (Other)
  Sender: FDA-Public Use
  Company Number: 2009192549

PATIENT
  Sex: Male

DRUGS (1)
  1. CHANTIX [Suspect]
     Dates: start: 20090101

REACTIONS (4)
  - BLADDER DILATATION [None]
  - DYSURIA [None]
  - MUSCULOSKELETAL DISCOMFORT [None]
  - RENAL FAILURE [None]
